FAERS Safety Report 4380274-6 (Version None)
Quarter: 2004Q2

REPORT INFORMATION
  Report Type: 
  Country: None (occurrence: None)
  Receive Date: 20040618
  Receipt Date: 20040607
  Transmission Date: 20050107
  Serious: Yes (Other)
  Sender: FDA-Public Use
  Company Number: PHFR2004GB02456

PATIENT
  Age: 52 Year
  Sex: Female

DRUGS (3)
  1. LAMISIL [Suspect]
     Dosage: 250 MG, QD
     Route: 048
     Dates: start: 20040420, end: 20040512
  2. DIHYDROCODEINE [Concomitant]
     Dosage: 60 MG, BID
     Route: 048
     Dates: start: 20031001
  3. ESTRADIOL [Concomitant]
     Dosage: INTERMITTENTLY
     Route: 061
     Dates: start: 20010101

REACTIONS (6)
  - INFLUENZA LIKE ILLNESS [None]
  - OEDEMA PERIPHERAL [None]
  - PAIN [None]
  - PRURITUS [None]
  - SKIN DISCOLOURATION [None]
  - URTICARIA [None]
